FAERS Safety Report 17015093 (Version 1)
Quarter: 2019Q4

REPORT INFORMATION
  Report Type: Spontaneous
  Country: US (occurrence: US)
  Receive Date: 20191108
  Receipt Date: 20191108
  Transmission Date: 20200122
  Serious: Yes (Disabling)
  Sender: FDA-Public Use
  Company Number: None

PATIENT
  Age: 36 Year
  Sex: Female
  Weight: 114.75 kg

DRUGS (1)
  1. REMICADE [Suspect]
     Active Substance: INFLIXIMAB

REACTIONS (3)
  - Psoriatic arthropathy [None]
  - Arthralgia [None]
  - Quality of life decreased [None]

NARRATIVE: CASE EVENT DATE: 20170503
